FAERS Safety Report 23249873 (Version 1)
Quarter: 2023Q4

REPORT INFORMATION
  Report Type: Report from Study
  Country: US (occurrence: US)
  Receive Date: 20231201
  Receipt Date: 20231201
  Transmission Date: 20240109
  Serious: No
  Sender: FDA-Public Use
  Company Number: US-ALXN-202311USA001702US

PATIENT

DRUGS (1)
  1. STRENSIQ [Suspect]
     Active Substance: ASFOTASE ALFA
     Indication: Product used for unknown indication
     Dosage: UNK
     Route: 065

REACTIONS (6)
  - Fall [Recovered/Resolved]
  - Joint injury [Recovered/Resolved]
  - Limb discomfort [Recovered/Resolved]
  - Concussion [Unknown]
  - Radius fracture [Recovered/Resolved]
  - Bursitis [Unknown]

NARRATIVE: CASE EVENT DATE: 20220601
